FAERS Safety Report 21676355 (Version 1)
Quarter: 2022Q4

REPORT INFORMATION
  Report Type: Spontaneous
  Country: US (occurrence: None)
  Receive Date: 20221202
  Receipt Date: 20221202
  Transmission Date: 20230113
  Serious: No
  Sender: FDA-Public Use
  Company Number: None

PATIENT
  Age: 46 Year
  Sex: Female
  Weight: 83.25 kg

DRUGS (32)
  1. MINOXIDIL [Suspect]
     Active Substance: MINOXIDIL
     Indication: Hypertension
     Dosage: OTHER QUANTITY : 2 TABLET(S);?FREQUENCY : DAILY;?
     Route: 048
  2. ELIQUIS [Concomitant]
     Active Substance: APIXABAN
  3. hyothiamine sulfate [Concomitant]
  4. PHENOBARBITAL [Concomitant]
     Active Substance: PHENOBARBITAL
  5. PRAZOSIN [Concomitant]
     Active Substance: PRAZOSIN
  6. HYDROXYZINE PAMOATE [Concomitant]
     Active Substance: HYDROXYZINE PAMOATE
  7. FAMOTIDINE [Concomitant]
     Active Substance: FAMOTIDINE
  8. LEVOTHYROXINE [Concomitant]
     Active Substance: LEVOTHYROXINE
  9. SPIRONOLACTONE [Concomitant]
     Active Substance: SPIRONOLACTONE
  10. MONTELUKAST [Concomitant]
     Active Substance: MONTELUKAST SODIUM
  11. EZETIMIBE [Concomitant]
     Active Substance: EZETIMIBE
  12. FERROUS GLUCONATE [Concomitant]
     Active Substance: FERROUS GLUCONATE
  13. esomeprazole mag DR [Concomitant]
  14. MAGNESIUM [Concomitant]
     Active Substance: MAGNESIUM
  15. glyconate [Concomitant]
  16. VITAMIN B2 [Concomitant]
     Active Substance: RIBOFLAVIN
  17. ISOSORBIDE MONONITRATE [Concomitant]
     Active Substance: ISOSORBIDE MONONITRATE
  18. FUROSEMIDE [Concomitant]
     Active Substance: FUROSEMIDE
  19. ondansitron [Concomitant]
  20. BENZONATATE [Concomitant]
     Active Substance: BENZONATATE
  21. permethizine [Concomitant]
  22. TRULANCE [Concomitant]
     Active Substance: PLECANATIDE
  23. LOPERAMIDE [Concomitant]
     Active Substance: LOPERAMIDE
  24. POTASSIUM CHLORIDE [Concomitant]
     Active Substance: POTASSIUM CHLORIDE
  25. VITAMIN D3 [Concomitant]
     Active Substance: CHOLECALCIFEROL
  26. ipitropium bromide [Concomitant]
  27. AZELASTINE [Concomitant]
     Active Substance: AZELASTINE
  28. PROBIOTICS NOS [Concomitant]
     Active Substance: PROBIOTICS NOS
  29. intrinzi B12-folate [Concomitant]
  30. ULTIMATE [Concomitant]
     Active Substance: CHLOROXYLENOL
  31. OMEGA 3 [Concomitant]
     Active Substance: CAPSAICIN
  32. VITAMIN C [Concomitant]
     Active Substance: ASCORBIC ACID

REACTIONS (1)
  - Hypertrichosis [None]

NARRATIVE: CASE EVENT DATE: 20221015
